FAERS Safety Report 5385942-5 (Version None)
Quarter: 2007Q3

REPORT INFORMATION
  Report Type: 
  Country: None (occurrence: None)
  Receive Date: 20070710
  Receipt Date: 20070627
  Transmission Date: 20080115
  Serious: Yes (Hospitalization)
  Sender: FDA-Public Use
  Company Number: 2007-02193

PATIENT
  Sex: Female

DRUGS (3)
  1. VELCADE [Suspect]
     Indication: MULTIPLE MYELOMA
     Dosage: 2.20 MG, INTRAVENOUS
     Route: 042
     Dates: start: 20070612, end: 20070622
  2. MELPHALAN(MELPHALAN) VIAL [Suspect]
     Indication: MULTIPLE MYELOMA
  3. PREDNISONE [Suspect]
     Indication: MULTIPLE MYELOMA

REACTIONS (2)
  - GAIT DISTURBANCE [None]
  - PAIN [None]
